FAERS Safety Report 21077139 (Version 3)
Quarter: 2022Q3

REPORT INFORMATION
  Report Type: Report from Study
  Country: GB (occurrence: GB)
  Receive Date: 20220713
  Receipt Date: 20220901
  Transmission Date: 20221026
  Serious: Yes (Death, Hospitalization, Other)
  Sender: FDA-Public Use
  Company Number: GB-CELGENE-GBR-2015115208

PATIENT
  Age: 86 Year
  Sex: Male
  Weight: 78.9 kg

DRUGS (27)
  1. DEXAMETHASONE [Suspect]
     Active Substance: DEXAMETHASONE
     Indication: Plasma cell myeloma
     Dosage: FREQUENCY TEXT: NOT PROVIDED
     Route: 065
     Dates: start: 20141022, end: 20141217
  2. DEXAMETHASONE [Suspect]
     Active Substance: DEXAMETHASONE
     Dosage: FREQUENCY TEXT: NOT PROVIDED
     Route: 065
     Dates: start: 201502, end: 20150907
  3. DEXAMETHASONE [Suspect]
     Active Substance: DEXAMETHASONE
     Dosage: FREQUENCY TEXT: NOT PROVIDED
     Route: 065
     Dates: start: 20130816, end: 20140131
  4. DEXAMETHASONE [Suspect]
     Active Substance: DEXAMETHASONE
     Dosage: FREQUENCY TEXT: D1, 2, 8, 9, 15, 16, 22 AND 23
     Route: 065
     Dates: start: 20150926, end: 20151018
  5. DEXAMETHASONE [Suspect]
     Active Substance: DEXAMETHASONE
     Dosage: FREQUENCY TEXT: D1, 2, 8, 9, 15, 16, 22 AND 23
     Route: 065
     Dates: start: 20151022, end: 20151102
  6. POMALYST [Suspect]
     Active Substance: POMALIDOMIDE
     Indication: Plasma cell myeloma
     Dosage: 4 MILLIGRAM (84 MG EVERY 28 DAYS)?DURATION TEXT : CYCLE 1
     Route: 048
     Dates: start: 20150925, end: 20151015
  7. POMALYST [Suspect]
     Active Substance: POMALIDOMIDE
     Dosage: 3 MILLIGRAM (63 MG EVERY 28 DAYS)
     Route: 048
     Dates: start: 20151022, end: 20151102
  8. COCODAMOL [Concomitant]
     Active Substance: ACETAMINOPHEN\CODEINE PHOSPHATE
     Indication: Pain
     Dosage: 30/500
     Route: 048
     Dates: start: 20151102
  9. COCODAMOL [Concomitant]
     Active Substance: ACETAMINOPHEN\CODEINE PHOSPHATE
  10. COTRIMOXAZOLE [Concomitant]
     Active Substance: SULFAMETHOXAZOLE\TRIMETHOPRIM
     Indication: Infection prophylaxis
     Dosage: 480 MG, BID
     Route: 048
     Dates: start: 20151102
  11. COTRIMOXAZOLE [Concomitant]
     Active Substance: SULFAMETHOXAZOLE\TRIMETHOPRIM
  12. LANSOPRAZOLE [Concomitant]
     Active Substance: LANSOPRAZOLE
     Indication: Product used for unknown indication
     Route: 065
  13. SIMVASTATIN [Concomitant]
     Active Substance: SIMVASTATIN
     Indication: Blood cholesterol
     Dosage: 200 MG, UNK
     Route: 048
     Dates: start: 20151102
  14. CALCIUM CARBONATE\CHOLECALCIFEROL [Concomitant]
     Active Substance: CALCIUM CARBONATE\CHOLECALCIFEROL
     Indication: Osteoporosis prophylaxis
     Dosage: UNK, QD
     Route: 048
     Dates: start: 20151102
  15. CALCIUM CARBONATE\CHOLECALCIFEROL [Concomitant]
     Active Substance: CALCIUM CARBONATE\CHOLECALCIFEROL
  16. GABAPENTIN [Concomitant]
     Active Substance: GABAPENTIN
     Indication: Pain
     Dosage: 600 MG, UNK
     Route: 048
     Dates: start: 20151102
  17. GLIMEPIRIDE [Concomitant]
     Active Substance: GLIMEPIRIDE
     Indication: Diabetes mellitus
     Dosage: 1 MG, UNK
     Route: 048
     Dates: start: 20151102
  18. FINASTERIDE [Concomitant]
     Active Substance: FINASTERIDE
     Indication: Prostatitis
     Dosage: 5 MG, UNK
     Route: 048
     Dates: start: 20151102
  19. FINASTERIDE [Concomitant]
     Active Substance: FINASTERIDE
  20. BISOPROLOL [Concomitant]
     Active Substance: BISOPROLOL
     Indication: Drug therapy
     Dosage: 5 MG, UNK
     Route: 048
     Dates: start: 20151102
  21. BISOPROLOL [Concomitant]
     Active Substance: BISOPROLOL
  22. WARFARIN [Concomitant]
     Active Substance: WARFARIN
     Indication: Anticoagulant therapy
     Route: 065
  23. WARFARIN [Concomitant]
     Active Substance: WARFARIN
     Dosage: FREQUENCY TEXT: NOT PROVIDED
     Route: 065
  24. OZOTRON [ONDANSETRON] [Concomitant]
     Indication: Nausea
     Dosage: 8 MG, BID
     Route: 048
     Dates: start: 20151102
  25. ULCERAN [LANSOPRAZOLE] [Concomitant]
     Indication: Product used for unknown indication
     Dosage: 30 MILLIGRAM
     Route: 048
  26. ULCERAN [LANSOPRAZOLE] [Concomitant]
     Dosage: 30 MILLIGRAM
     Route: 048
  27. MOVICOL [Concomitant]
     Active Substance: POLYETHYLENE GLYCOL 3350\POTASSIUM CHLORIDE\SODIUM BICARBONATE\SODIUM CHLORIDE
     Indication: Constipation
     Dosage: FREQUENCY TEXT: NOT PROVIDED
     Route: 048
     Dates: start: 20151102

REACTIONS (8)
  - Acute kidney injury [Fatal]
  - Plasma cell myeloma [Fatal]
  - Anaemia [Fatal]
  - General physical health deterioration [Fatal]
  - Neutropenia [Fatal]
  - Peripheral sensory neuropathy [Fatal]
  - Fluid retention [Fatal]
  - Thrombocytopenia [Fatal]

NARRATIVE: CASE EVENT DATE: 20151001
